FAERS Safety Report 5974298-2 (Version None)
Quarter: 2008Q4

REPORT INFORMATION
  Report Type: 
  Country: None (occurrence: None)
  Receive Date: 20081201
  Receipt Date: 20081125
  Transmission Date: 20090506
  Serious: Yes (Hospitalization)
  Sender: FDA-Public Use
  Company Number: CA-PFIZER INC-2008085145

PATIENT
  Sex: Male
  Weight: 72 kg

DRUGS (11)
  1. SU-011,248 [Suspect]
     Indication: RENAL CELL CARCINOMA
     Route: 048
     Dates: start: 20080904, end: 20081001
  2. PREVACID [Concomitant]
     Route: 048
     Dates: start: 20060201
  3. FLOVENT [Concomitant]
     Route: 048
     Dates: start: 20050101
  4. SEREVENT [Concomitant]
     Route: 048
     Dates: start: 20050101
  5. VENTOLIN [Concomitant]
     Route: 048
     Dates: start: 20050101
  6. ALBUTEROL SULFATE [Concomitant]
     Route: 048
     Dates: start: 20050101
  7. ATENOLOL [Concomitant]
     Route: 048
     Dates: start: 20060713
  8. HYDROCHLOROTHIAZIDE [Concomitant]
     Route: 048
     Dates: start: 20060913, end: 20061116
  9. LOPERAMIDE HYDROCHLORIDE [Concomitant]
     Route: 048
     Dates: start: 20060817, end: 20060819
  10. SYNTHROID [Concomitant]
     Route: 048
     Dates: start: 20061019
  11. EMPRACET [Concomitant]
     Route: 048
     Dates: start: 20070920, end: 20071024

REACTIONS (1)
  - MYOCARDIAL INFARCTION [None]
